FAERS Safety Report 13068142 (Version 1)
Quarter: 2016Q4

REPORT INFORMATION
  Report Type: Spontaneous
  Country: US (occurrence: US)
  Receive Date: 20161227
  Receipt Date: 20161227
  Transmission Date: 20170207
  Serious: Yes (Hospitalization)
  Sender: FDA-Public Use
  Company Number: None

PATIENT
  Age: 38 Year
  Sex: Male
  Weight: 58.6 kg

DRUGS (8)
  1. FENTANYL. [Concomitant]
     Active Substance: FENTANYL
  2. SENNA [Concomitant]
     Active Substance: SENNA LEAF\SENNOSIDES\SENNOSIDES A AND B
  3. ONDANSETRON [Concomitant]
     Active Substance: ONDANSETRON
  4. CETUXIMAB [Suspect]
     Active Substance: CETUXIMAB
     Indication: SQUAMOUS CELL CARCINOMA OF HEAD AND NECK
     Route: 042
     Dates: start: 20160922, end: 20161219
  5. TYLENOL [Concomitant]
     Active Substance: ACETAMINOPHEN
  6. PROCHLORPERAZINE. [Concomitant]
     Active Substance: PROCHLORPERAZINE
  7. OXYCODONE [Concomitant]
     Active Substance: OXYCODONE
  8. PAZOPANIB [Suspect]
     Active Substance: PAZOPANIB
     Indication: SQUAMOUS CELL CARCINOMA OF HEAD AND NECK
     Dosage: 800 MG QD PO/ G-TUBE
     Route: 048
     Dates: start: 20160922, end: 20161222

REACTIONS (6)
  - Vomiting [None]
  - Flank pain [None]
  - Ureterolithiasis [None]
  - Drug ineffective [None]
  - Hydronephrosis [None]
  - Nausea [None]

NARRATIVE: CASE EVENT DATE: 20161221
